FAERS Safety Report 14376622 (Version 2)
Quarter: 2018Q1

REPORT INFORMATION
  Report Type: Spontaneous
  Country: US (occurrence: US)
  Receive Date: 20180111
  Receipt Date: 20180111
  Transmission Date: 20180509
  Serious: No
  Sender: FDA-Public Use
  Company Number: US-DRREDDYS-USA/USA/17/0093725

PATIENT
  Age: 58 Year
  Sex: Male
  Weight: 59 kg

DRUGS (2)
  1. CARBAMAZEPINE. [Concomitant]
     Active Substance: CARBAMAZEPINE
     Indication: SEIZURE
     Route: 065
  2. NICOTINE. [Suspect]
     Active Substance: NICOTINE
     Indication: SMOKING CESSATION THERAPY
     Route: 062
     Dates: start: 20170919

REACTIONS (4)
  - Overdose [Unknown]
  - Treatment noncompliance [Unknown]
  - Abnormal dreams [Unknown]
  - Product quality issue [Unknown]
